FAERS Safety Report 5581097-2 (Version None)
Quarter: 2007Q4

REPORT INFORMATION
  Report Type: 
  Country: None (occurrence: None)
  Receive Date: 20071227
  Receipt Date: 20071220
  Transmission Date: 20080405
  Serious: Yes (Death, Other)
  Sender: FDA-Public Use
  Company Number: 163-20785-07110489

PATIENT
  Age: 88 Year
  Sex: Male

DRUGS (1)
  1. THALOMID [Suspect]
     Indication: MULTIPLE MYELOMA
     Dosage: 100 MG, 1 IN 1 D, ORAL
     Route: 048
     Dates: start: 20070521, end: 20070601

REACTIONS (8)
  - BLOOD PRESSURE DECREASED [None]
  - CHRONIC OBSTRUCTIVE PULMONARY DISEASE [None]
  - DELIRIUM [None]
  - DUODENAL ULCER PERFORATION [None]
  - POST PROCEDURAL COMPLICATION [None]
  - POSTOPERATIVE RENAL FAILURE [None]
  - RESPIRATORY DISTRESS [None]
  - VENTRICULAR TACHYCARDIA [None]
